FAERS Safety Report 11146791 (Version 1)
Quarter: 2015Q2

REPORT INFORMATION
  Report Type: Spontaneous
  Country: US (occurrence: None)
  Receive Date: 20150527
  Receipt Date: 20150527
  Transmission Date: 20150821
  Serious: No
  Sender: FDA-Public Use
  Company Number: None

PATIENT
  Age: 9 Year
  Sex: Male
  Weight: 19.05 kg

DRUGS (4)
  1. ADDERALL XR [Concomitant]
     Active Substance: AMPHETAMINE ASPARTATE\AMPHETAMINE SULFATE\DEXTROAMPHETAMINE SACCHARATE\DEXTROAMPHETAMINE SULFATE
  2. FLINTSTONE MULTI-VITAMIN WITH IRON [Concomitant]
  3. AMPHETAMINE SALT ER [Suspect]
     Active Substance: AMPHETAMINE ASPARTATE\AMPHETAMINE SULFATE\DEXTROAMPHETAMINE SACCHARATE\DEXTROAMPHETAMINE SULFATE
     Indication: ATTENTION DEFICIT/HYPERACTIVITY DISORDER
     Dosage: 1 CAPSULE, EVERY MORNING
     Route: 048
     Dates: start: 20150501, end: 20150519
  4. ALLERTEC [Concomitant]

REACTIONS (6)
  - Impulsive behaviour [None]
  - Educational problem [None]
  - Product substitution issue [None]
  - Abnormal behaviour [None]
  - Disturbance in attention [None]
  - Depressed mood [None]

NARRATIVE: CASE EVENT DATE: 20150501
